FAERS Safety Report 6574215-0 (Version None)
Quarter: 2010Q1

REPORT INFORMATION
  Report Type: 
  Country: None (occurrence: None)
  Receive Date: 20100201
  Receipt Date: 20100114
  Transmission Date: 20100710
  Serious: Yes (Hospitalization)
  Sender: FDA-Public Use
  Company Number: 1062

PATIENT
  Age: 54 Year
  Sex: Female

DRUGS (3)
  1. FLAVOXATE HYDROCHLORIDE [Suspect]
     Indication: URINARY INCONTINENCE
     Dosage: 200 MG 3 TIMES DAILY
  2. TIBOLONE [Concomitant]
  3. ETIZOLAM [Concomitant]

REACTIONS (2)
  - HEPATITIS [None]
  - LIVER INJURY [None]
